FAERS Safety Report 20906030 (Version 1)
Quarter: 2022Q2

REPORT INFORMATION
  Report Type: Spontaneous
  Country: US (occurrence: None)
  Receive Date: 20220601
  Receipt Date: 20220601
  Transmission Date: 20220721
  Serious: Yes (Other)
  Sender: FDA-Public Use
  Company Number: None

PATIENT
  Age: 76 Year
  Sex: Female
  Weight: 55.5 kg

DRUGS (2)
  1. DOBUTAMINE [Suspect]
     Active Substance: DOBUTAMINE HYDROCHLORIDE
  2. DOBUTAMINE [Suspect]
     Active Substance: DOBUTAMINE HYDROCHLORIDE

REACTIONS (4)
  - Bradycardia [None]
  - Device delivery system issue [None]
  - Device alarm issue [None]
  - Device alarm issue [None]

NARRATIVE: CASE EVENT DATE: 20220525
